FAERS Safety Report 8290222-4 (Version None)
Quarter: 2012Q2

REPORT INFORMATION
  Report Type: 
  Country: None (occurrence: None)
  Receive Date: 20120417
  Receipt Date: 20120403
  Transmission Date: 20120825
  Serious: Yes (Hospitalization, Other)
  Sender: FDA-Public Use
  Company Number: US-ROCHE-1056725

PATIENT
  Sex: Female

DRUGS (1)
  1. MABTHERA [Suspect]
     Indication: RHEUMATOID ARTHRITIS
     Dosage: DOSE: UNKNOWN
     Route: 042
     Dates: start: 20070101

REACTIONS (3)
  - GAIT DISTURBANCE [None]
  - FALL [None]
  - BLOOD SODIUM DECREASED [None]
